FAERS Safety Report 5615058-1 (Version None)
Quarter: 2008Q1

REPORT INFORMATION
  Report Type: 
  Country: None (occurrence: None)
  Receive Date: 20080205
  Receipt Date: 20080205
  Transmission Date: 20080703
  Serious: Yes (Life-Threatening, Other)
  Sender: FDA-Public Use
  Company Number: None

PATIENT
  Age: 50 Year
  Sex: Male
  Weight: 89.8122 kg

DRUGS (1)
  1. GADOLINIUM CONTRAST [Suspect]

REACTIONS (8)
  - ARTHRALGIA [None]
  - ERYTHEMA [None]
  - ILL-DEFINED DISORDER [None]
  - PAIN [None]
  - PAIN IN EXTREMITY [None]
  - PAIN OF SKIN [None]
  - PARAESTHESIA [None]
  - SKIN DISORDER [None]
